FAERS Safety Report 4570263-0 (Version None)
Quarter: 2005Q1

REPORT INFORMATION
  Report Type: 
  Country: None (occurrence: None)
  Receive Date: 20050127
  Receipt Date: 20050127
  Transmission Date: 20050727
  Serious: Yes (Other)
  Sender: FDA-Public Use
  Company Number: None

PATIENT
  Age: 54 Year
  Sex: Male
  Weight: 68.0396 kg

DRUGS (1)
  1. LOVENOX [Suspect]
     Indication: RESPIRATORY DISORDER
     Dosage: 1 PER DAY
     Dates: start: 20050109, end: 20050114

REACTIONS (3)
  - CONTUSION [None]
  - HAEMORRHAGE [None]
  - PNEUMONIA [None]
